FAERS Safety Report 24687669 (Version 1)
Quarter: 2024Q4

REPORT INFORMATION
  Report Type: Spontaneous
  Country: PL (occurrence: PL)
  Receive Date: 20241202
  Receipt Date: 20241202
  Transmission Date: 20250114
  Serious: Yes (Life-Threatening)
  Sender: BAYER HEALTHCARE PHARMACEUTICALS INC.
  Company Number: None

PATIENT
  Age: 77 Year
  Sex: Female
  Weight: 55 kg

DRUGS (1)
  1. ULTRAVIST [Suspect]
     Active Substance: IOPROMIDE
     Indication: Computerised tomogram
     Dosage: 0,76886 G/ML
     Route: 042
     Dates: start: 20200915, end: 20200915

REACTIONS (8)
  - Hypoaesthesia oral [Recovered/Resolved]
  - Feeling hot [Recovered/Resolved]
  - Chills [Unknown]
  - Face oedema [Unknown]
  - Abdominal pain [Unknown]
  - Nausea [Unknown]
  - Blood pressure decreased [Unknown]
  - Shock symptom [Unknown]

NARRATIVE: CASE EVENT DATE: 20200915
